FAERS Safety Report 7616709-2 (Version None)
Quarter: 2011Q3

REPORT INFORMATION
  Report Type: 
  Country: None (occurrence: None)
  Receive Date: 20110718
  Receipt Date: 20110708
  Transmission Date: 20111222
  Serious: Yes (Hospitalization)
  Sender: FDA-Public Use
  Company Number: JP-BRISTOL-MYERS SQUIBB COMPANY-13971361

PATIENT
  Age: 40 Year
  Sex: Male

DRUGS (10)
  1. REYATAZ [Suspect]
     Indication: HIV INFECTION
     Dosage: INTERRUPTED ON 21JAN05. RESTARTED ON 22JUN05. DISCONTINUED ON 10MAY07
     Route: 048
     Dates: start: 20041221, end: 20070510
  2. NORVIR [Suspect]
     Indication: HIV INFECTION
     Dosage: CAPS. INTERRUPTED ON 21JAN05.RESTARTED ON 22JUN05-10MAY07 19JAN2011-ONG
     Route: 048
     Dates: start: 20041221
  3. EPIVIR [Suspect]
     Indication: HIV INFECTION
     Dosage: TABS. 150MGBID 22JUL05.INTERRUPTED ON 02AUG05.300MG/DAY FROM 03AUG05. DISCONTINUED ON 13DEC07
     Route: 048
     Dates: start: 20050722, end: 20071213
  4. EFAVIRENZ [Suspect]
     Indication: HIV INFECTION
     Dosage: INTERR ON 21DEC04.14JUN-21DEC04(191D).RESTARTED 09DEC05,17JUL09.DISCONT11JUL07+16OCT09
     Route: 048
     Dates: start: 20040614, end: 20091016
  5. COMBIVIR [Suspect]
     Indication: HIV INFECTION
     Dosage: INTERRUPTED ON 21JAN05. RESTARTED ON 22JUN05-22JUL05
     Dates: start: 20040514, end: 20050722
  6. ISENTRESS [Suspect]
     Indication: HIV INFECTION
     Dosage: TAB  INITIATED ON 16-OCT-2009
     Route: 048
     Dates: start: 20091016, end: 20100930
  7. TRUVADA [Suspect]
     Indication: HIV INFECTION
     Dosage: INITIATED ON 14-DEC-2007, 1 DOSAGE FORM = 1 TABLET DAILY
     Route: 048
     Dates: start: 20071214, end: 20101001
  8. VIREAD [Suspect]
     Indication: HIV INFECTION
     Dosage: TABS
     Route: 048
     Dates: start: 20050802, end: 20071213
  9. RETROVIR [Suspect]
     Dates: start: 20050722, end: 20050802
  10. KALETRA [Suspect]
     Indication: HIV INFECTION
     Dosage: TABS. INTERRUPTED ON 30MAY04. RESTARTED ON 11MAY07;DISCONTINUED ON 16OCT09
     Route: 048
     Dates: start: 20040514, end: 20091016

REACTIONS (1)
  - DIABETES MELLITUS [None]
